FAERS Safety Report 17605093 (Version 1)
Quarter: 2020Q1

REPORT INFORMATION
  Report Type: Spontaneous
  Country: FR (occurrence: FR)
  Receive Date: 20200331
  Receipt Date: 20200331
  Transmission Date: 20200409
  Serious: Yes (Hospitalization)
  Sender: FDA-Public Use
  Company Number: FR-MYLANLABS-2020M1032676

PATIENT
  Age: 5 Year
  Sex: Female
  Weight: 28 kg

DRUGS (1)
  1. RISPERIDONE. [Suspect]
     Active Substance: RISPERIDONE
     Indication: BEHAVIOUR DISORDER
     Dosage: 1 MILLIGRAM, QD
     Route: 048
     Dates: start: 20200207, end: 20200208

REACTIONS (3)
  - Protrusion tongue [Recovered/Resolved]
  - Agitation [Recovered/Resolved]
  - Extrapyramidal disorder [Recovered/Resolved]

NARRATIVE: CASE EVENT DATE: 20200208
